FAERS Safety Report 12168174 (Version 2)
Quarter: 2017Q2

REPORT INFORMATION
  Report Type: Report from Study
  Country: US (occurrence: US)
  Receive Date: 20160310
  Receipt Date: 20170623
  Transmission Date: 20170830
  Serious: No
  Sender: FDA-Public Use
  Company Number: PHEH2016US005790

PATIENT
  Sex: Male
  Weight: 90.71 kg

DRUGS (1)
  1. GILENYA [Suspect]
     Active Substance: FINGOLIMOD HYDROCHLORIDE
     Indication: MULTIPLE SCLEROSIS
     Dosage: 0.5 MG, QD
     Route: 048
     Dates: start: 20120912

REACTIONS (4)
  - Hypoacusis [Unknown]
  - Memory impairment [Unknown]
  - Confusional state [Unknown]
  - Amnesia [Unknown]
